FAERS Safety Report 22754555 (Version 4)
Quarter: 2024Q1

REPORT INFORMATION
  Report Type: Spontaneous
  Country: CA (occurrence: CA)
  Receive Date: 20230727
  Receipt Date: 20240114
  Transmission Date: 20240410
  Serious: Yes (Other)
  Sender: FDA-Public Use
  Company Number: CA-CELLTRION INC.-2023CA014107

PATIENT

DRUGS (4)
  1. YUFLYMA [Suspect]
     Active Substance: ADALIMUMAB-AATY
     Indication: Psoriatic arthropathy
     Dosage: 40 MG , 1 EVERY 2 WEEKS
     Route: 058
     Dates: start: 20230705
  2. YUFLYMA [Suspect]
     Active Substance: ADALIMUMAB-AATY
     Dosage: 40 MG , 1 EVERY 2 WEEKS
     Route: 058
     Dates: start: 20230720
  3. PREDNISONE [Concomitant]
     Active Substance: PREDNISONE
  4. TYLENOL [Concomitant]
     Active Substance: ACETAMINOPHEN

REACTIONS (4)
  - Blood pressure systolic increased [Recovered/Resolved]
  - Hot flush [Recovered/Resolved]
  - Hypoaesthesia [Recovered/Resolved]
  - Therapy cessation [Unknown]

NARRATIVE: CASE EVENT DATE: 20230707
